FAERS Safety Report 18722425 (Version 2)
Quarter: 2021Q1

REPORT INFORMATION
  Report Type: Spontaneous
  Country: JP (occurrence: JP)
  Receive Date: 20210111
  Receipt Date: 20210304
  Transmission Date: 20210419
  Serious: Yes (Other)
  Sender: FDA-Public Use
  Company Number: JP-AMGEN-JPNSP2021002667

PATIENT
  Age: 57 Year
  Sex: Female

DRUGS (2)
  1. ROMOSOZUMAB [Concomitant]
     Active Substance: ROMOSOZUMAB
     Dosage: UNK
  2. PRALIA [Suspect]
     Active Substance: DENOSUMAB
     Indication: OSTEOPOROSIS
     Dosage: UNK
     Route: 065

REACTIONS (3)
  - Rib fracture [Unknown]
  - Spinal fracture [Unknown]
  - Pelvic fracture [Unknown]
